FAERS Safety Report 5316055-6 (Version None)
Quarter: 2007Q2

REPORT INFORMATION
  Report Type: 
  Country: None (occurrence: None)
  Receive Date: 20070503
  Receipt Date: 20070426
  Transmission Date: 20071010
  Serious: Yes (Other)
  Sender: FDA-Public Use
  Company Number: US-ELI_LILLY_AND_COMPANY-US200703001942

PATIENT
  Age: 55 Year
  Sex: Female

DRUGS (9)
  1. HUMULIN 70/30 [Suspect]
     Indication: DIABETES MELLITUS
     Dosage: 40 U, DAILY (1/D)
     Dates: start: 20020101
  2. HUMULIN R [Suspect]
     Indication: DIABETES MELLITUS
     Dosage: UNK, AS NEEDED
     Dates: start: 19960101
  3. HUMULIN N [Suspect]
     Indication: DIABETES MELLITUS
  4. ALTACE [Concomitant]
  5. ATENOLOL [Concomitant]
  6. PAXIL [Concomitant]
  7. AVANDIA [Concomitant]
  8. ULTRAM [Concomitant]
  9. ASCORBIC ACID [Concomitant]

REACTIONS (3)
  - CATARACT [None]
  - VISUAL ACUITY REDUCED [None]
  - VITREOUS HAEMORRHAGE [None]
